FAERS Safety Report 17150412 (Version 1)
Quarter: 2019Q4

REPORT INFORMATION
  Report Type: Spontaneous
  Country: US (occurrence: US)
  Receive Date: 20191213
  Receipt Date: 20191213
  Transmission Date: 20200122
  Serious: Yes (Hospitalization, Other)
  Sender: FDA-Public Use
  Company Number: US-GLAXOSMITHKLINE-US2019AMR223715

PATIENT
  Age: 88 Year
  Sex: Female

DRUGS (1)
  1. NUCALA [Suspect]
     Active Substance: MEPOLIZUMAB
     Indication: ASTHMA
     Dosage: UNK
     Route: 065

REACTIONS (7)
  - Radiation pneumonitis [Unknown]
  - Product dose omission [Unknown]
  - Cellulitis [Not Recovered/Not Resolved]
  - Pruritus [Recovered/Resolved]
  - Macular degeneration [Unknown]
  - Lung neoplasm malignant [Unknown]
  - Skin lesion [Recovered/Resolved]
